FAERS Safety Report 19029890 (Version 1)
Quarter: 2021Q1

REPORT INFORMATION
  Report Type: Spontaneous
  Country: US (occurrence: US)
  Receive Date: 20210318
  Receipt Date: 20210318
  Transmission Date: 20210420
  Serious: No
  Sender: FDA-Public Use
  Company Number: None

PATIENT
  Age: 84 Year
  Sex: Male
  Weight: 64 kg

DRUGS (1)
  1. LEVOFLOXACIN (LEVOFLOXACIN 250MG TAB) [Suspect]
     Active Substance: LEVOFLOXACIN
     Indication: CHRONIC OBSTRUCTIVE PULMONARY DISEASE
     Dates: start: 20201207, end: 20201213

REACTIONS (3)
  - Tendon rupture [None]
  - Peripheral swelling [None]
  - Pain [None]

NARRATIVE: CASE EVENT DATE: 20201221
